FAERS Safety Report 5356974-8 (Version None)
Quarter: 2007Q2

REPORT INFORMATION
  Report Type: 
  Country: None (occurrence: None)
  Receive Date: 20070530
  Receipt Date: 20070315
  Transmission Date: 20071010
  Serious: Yes (Hospitalization, Other)
  Sender: FDA-Public Use
  Company Number: US200701004394

PATIENT
  Age: 38 Year
  Sex: Female
  Weight: 77.6 kg

DRUGS (3)
  1. ZYPREXA [Suspect]
     Indication: SCHIZOPHRENIA
     Dates: start: 19960101, end: 20060101
  2. MULTIVITAMIN [Concomitant]
  3. SERTRALINE [Concomitant]

REACTIONS (7)
  - BLOOD TRIGLYCERIDES INCREASED [None]
  - DIABETES MELLITUS [None]
  - HYPERCHOLESTEROLAEMIA [None]
  - HYPERGLYCAEMIA [None]
  - HYPERTENSION [None]
  - METABOLIC DISORDER [None]
  - PANCREATITIS [None]
